FAERS Safety Report 8393665-3 (Version None)
Quarter: 2012Q2

REPORT INFORMATION
  Report Type: 
  Country: None (occurrence: None)
  Receive Date: 20120530
  Receipt Date: 20120525
  Transmission Date: 20120825
  Serious: Yes (Hospitalization, Other)
  Sender: FDA-Public Use
  Company Number: FR-BIOGENIDEC-2012BI018628

PATIENT
  Age: 52 Year
  Sex: Male

DRUGS (8)
  1. TROSPIUM CHLORIDE [Concomitant]
     Route: 048
  2. TAMSULOSIN HCL [Concomitant]
     Route: 048
  3. COLCHICINE [Concomitant]
     Indication: CHONDROCALCINOSIS
     Route: 048
  4. CORTICOSTEROIDS [Concomitant]
     Indication: BONE PAIN
  5. AVONEX [Suspect]
     Indication: MULTIPLE SCLEROSIS
     Route: 030
     Dates: start: 20080101
  6. GABAPENTIN [Concomitant]
     Route: 048
  7. ACETAMINOPHEN [Concomitant]
     Route: 048
  8. CORTICOSTEROIDS [Concomitant]
     Indication: CHONDROCALCINOSIS

REACTIONS (2)
  - MICROCYTIC ANAEMIA [None]
  - POLYARTHRITIS [None]
